FAERS Safety Report 12632516 (Version 2)
Quarter: 2016Q3

REPORT INFORMATION
  Report Type: Spontaneous
  Country: US (occurrence: US)
  Receive Date: 20160808
  Receipt Date: 20160808
  Transmission Date: 20161109
  Serious: No
  Sender: FDA-Public Use
  Company Number: US-BEH-2016062500

PATIENT
  Sex: Female
  Weight: 56 kg

DRUGS (31)
  1. IPRATROPIUM [Concomitant]
     Active Substance: IPRATROPIUM
  2. BIOTIN [Concomitant]
     Active Substance: BIOTIN
  3. ZINC [Concomitant]
     Active Substance: ZINC\ZINC CHLORIDE
  4. RANITIDINE. [Concomitant]
     Active Substance: RANITIDINE
  5. BENADRYL [Concomitant]
     Active Substance: DIPHENHYDRAMINE HYDROCHLORIDE
  6. AZELASTINE [Concomitant]
     Active Substance: AZELASTINE
  7. HIZENTRA [Suspect]
     Active Substance: HUMAN IMMUNOGLOBULIN G
     Indication: IMMUNODEFICIENCY COMMON VARIABLE
     Route: 058
     Dates: start: 20151228
  8. ADVAIR HFA [Concomitant]
     Active Substance: FLUTICASONE PROPIONATE\SALMETEROL XINAFOATE
  9. LEVALBUTEROL. [Concomitant]
     Active Substance: LEVALBUTEROL
  10. ZYRTEC [Concomitant]
     Active Substance: CETIRIZINE HYDROCHLORIDE
  11. SELENIUM [Concomitant]
     Active Substance: SELENIUM
  12. VITAMIN D [Concomitant]
     Active Substance: CHOLECALCIFEROL
  13. ZAFIRLUKAST. [Concomitant]
     Active Substance: ZAFIRLUKAST
  14. LIDOCAINE. [Concomitant]
     Active Substance: LIDOCAINE
  15. EPIPEN [Concomitant]
     Active Substance: EPINEPHRINE
  16. LIOTHYRONINE [Concomitant]
     Active Substance: LIOTHYRONINE
  17. XOPENEX [Concomitant]
     Active Substance: LEVALBUTEROL HYDROCHLORIDE
  18. TIROSINT [Concomitant]
     Active Substance: LEVOTHYROXINE SODIUM
  19. ZIPSOR [Concomitant]
     Active Substance: DICLOFENAC POTASSIUM
  20. QVAR [Concomitant]
     Active Substance: BECLOMETHASONE DIPROPIONATE
  21. PROPAFENONE. [Concomitant]
     Active Substance: PROPAFENONE
  22. CALCIUM [Concomitant]
     Active Substance: CALCIUM
  23. MAGNESIUM [Concomitant]
     Active Substance: MAGNESIUM
  24. PANTOPRAZOLE [Concomitant]
     Active Substance: PANTOPRAZOLE SODIUM
  25. GAS-X [Concomitant]
     Active Substance: DIMETHICONE
  26. ASPIRIN. [Concomitant]
     Active Substance: ASPIRIN
  27. PROBIOTIC [Concomitant]
     Active Substance: PROBIOTICS NOS
  28. PROMETHAZINE [Concomitant]
     Active Substance: PROMETHAZINE\PROMETHAZINE HYDROCHLORIDE
  29. ACETAMINOPHEN. [Concomitant]
     Active Substance: ACETAMINOPHEN
  30. DIPHENHYDRAMINE. [Concomitant]
     Active Substance: DIPHENHYDRAMINE
  31. DICYCLOMINE [Concomitant]
     Active Substance: DICYCLOMINE HYDROCHLORIDE

REACTIONS (1)
  - Administration site swelling [Unknown]
